FAERS Safety Report 8113718-4 (Version None)
Quarter: 2011Q4

REPORT INFORMATION
  Report Type: 
  Country: None (occurrence: None)
  Receive Date: 20111227
  Receipt Date: 20111025
  Transmission Date: 20120403
  Serious: Yes (Other)
  Sender: FDA-Public Use
  Company Number: PHEH2011US03440

PATIENT
  Age: 43 Year
  Sex: Female
  Weight: 59.5 kg

DRUGS (6)
  1. OXYBUTYNIN [Concomitant]
  2. MULTIVITAMINS (ASCORBIC ACID, ERGOCALCIFEROL, FOLIC ACID, NICOTINAMIDE [Concomitant]
  3. CITRUCEL (METHYLCELLULOSE) [Concomitant]
  4. GILENYA [Suspect]
     Indication: MULTIPLE SCLEROSIS
     Dosage: 0.5 MG, QD, ORAL  : 0.5 MG, DAILY, ORAL
     Route: 048
     Dates: start: 20110919
  5. GILENYA [Suspect]
     Indication: MULTIPLE SCLEROSIS
     Dosage: 0.5 MG, QD, ORAL  : 0.5 MG, DAILY, ORAL
     Route: 048
     Dates: start: 20110906, end: 20110907
  6. MIRALAX [Concomitant]

REACTIONS (1)
  - HEART RATE DECREASED [None]
